FAERS Safety Report 24762133 (Version 1)
Quarter: 2024Q4

REPORT INFORMATION
  Report Type: Report from Study
  Country: US (occurrence: US)
  Receive Date: 20241221
  Receipt Date: 20241221
  Transmission Date: 20250114
  Serious: Yes (Other)
  Sender: ABBVIE
  Company Number: US-ABBVIE-6055011

PATIENT
  Age: 61 Year
  Sex: Male

DRUGS (1)
  1. IMBRUVICA [Suspect]
     Active Substance: IBRUTINIB
     Indication: Chronic graft versus host disease
     Route: 048

REACTIONS (4)
  - Thrombotic thrombocytopenic purpura [Unknown]
  - Gastrooesophageal reflux disease [Unknown]
  - Graft versus host disease [Unknown]
  - Atrial fibrillation [Unknown]
